FAERS Safety Report 22007553 (Version 1)
Quarter: 2023Q1

REPORT INFORMATION
  Report Type: Report from Study
  Country: EG (occurrence: EG)
  Receive Date: 20230218
  Receipt Date: 20230218
  Transmission Date: 20230417
  Serious: Yes (Other)
  Sender: FDA-Public Use
  Company Number: EG-002147023-NVSC2023EG032806

PATIENT
  Sex: Female

DRUGS (1)
  1. TASIGNA [Suspect]
     Active Substance: NILOTINIB
     Indication: Chronic myeloid leukaemia
     Dosage: 4 DOSAGE FORM, QD (START DATE 14 DAYS AGO; END DATE: 4 MONTHS AGO)
     Route: 065

REACTIONS (9)
  - Cataract [Recovered/Resolved]
  - Eye pain [Recovered/Resolved]
  - Discomfort [Not Recovered/Not Resolved]
  - Fatigue [Not Recovered/Not Resolved]
  - Bone pain [Not Recovered/Not Resolved]
  - Hypertension [Not Recovered/Not Resolved]
  - Vomiting [Not Recovered/Not Resolved]
  - Headache [Not Recovered/Not Resolved]
  - Procedural dizziness [Recovered/Resolved]

NARRATIVE: CASE EVENT DATE: 20180101
